FAERS Safety Report 5103430-8 (Version None)
Quarter: 2006Q3

REPORT INFORMATION
  Report Type: 
  Country: None (occurrence: None)
  Receive Date: 20060731
  Receipt Date: 20060309
  Transmission Date: 20061208
  Serious: Yes (Hospitalization)
  Sender: FDA-Public Use
  Company Number: US-JNJFOC-20060302898

PATIENT
  Age: 40 Year
  Sex: Female
  Weight: 112.0385 kg

DRUGS (4)
  1. RISPERDAL [Suspect]
     Indication: SCHIZOAFFECTIVE DISORDER
     Dosage: 3 MG, 2 IN 1 DAY, ORAL
     Route: 048
     Dates: start: 20050225, end: 20060214
  2. TYLENOL (UNSPECIFIED) ACETAMINOPHEN [Concomitant]
  3. AMLODIPINE [Concomitant]
  4. PREVACID [Concomitant]

REACTIONS (2)
  - DIABETIC KETOACIDOSIS [None]
  - HYPERNATRAEMIA [None]
